FAERS Safety Report 19570337 (Version 1)
Quarter: 2021Q3

REPORT INFORMATION
  Report Type: Spontaneous
  Country: US (occurrence: US)
  Receive Date: 20210716
  Receipt Date: 20210716
  Transmission Date: 20211014
  Serious: Yes (Other)
  Sender: FDA-Public Use
  Company Number: US-PFIZER INC-2021832911

PATIENT
  Age: 74 Year
  Sex: Female
  Weight: 55.34 kg

DRUGS (2)
  1. LETROZOLE. [Concomitant]
     Active Substance: LETROZOLE
     Indication: BREAST CANCER METASTATIC
     Dosage: 2.5 MG, DAILY (BY MOUTH)
     Route: 048
     Dates: start: 20210424
  2. IBRANCE [Suspect]
     Active Substance: PALBOCICLIB
     Indication: BREAST CANCER METASTATIC
     Dosage: 100 MG, CYCLIC (TAKE ONE DAILY BY MOUTH FOR 21 DAYS AND OFF FOR SEVEN)
     Route: 048
     Dates: start: 20210426

REACTIONS (1)
  - Blood count abnormal [Unknown]

NARRATIVE: CASE EVENT DATE: 202106
